FAERS Safety Report 7098784-X (Version None)
Quarter: 2010Q4

REPORT INFORMATION
  Report Type: 
  Country: None (occurrence: None)
  Receive Date: 20101112
  Receipt Date: 20101101
  Transmission Date: 20110411
  Serious: Yes (Hospitalization, Disabling, Other)
  Sender: FDA-Public Use
  Company Number: US-JNJFOC-20081201211

PATIENT
  Sex: Female

DRUGS (6)
  1. REMICADE [Suspect]
     Indication: RHEUMATOID ARTHRITIS
     Route: 042
  2. REMICADE [Suspect]
     Route: 042
  3. REMICADE [Suspect]
     Route: 042
  4. REMICADE [Suspect]
     Indication: SPONDYLOARTHROPATHY
     Route: 042
  5. REMICADE [Suspect]
     Route: 042
  6. REMICADE [Suspect]
     Route: 042

REACTIONS (9)
  - ADVERSE DRUG REACTION [None]
  - CANDIDIASIS [None]
  - DEHYDRATION [None]
  - FALL [None]
  - IMPAIRED WORK ABILITY [None]
  - NAUSEA [None]
  - SYSTEMIC LUPUS ERYTHEMATOSUS [None]
  - UPPER LIMB FRACTURE [None]
  - VOMITING [None]
